FAERS Safety Report 13760974 (Version 1)
Quarter: 2017Q3

REPORT INFORMATION
  Report Type: Spontaneous
  Country: TR (occurrence: TR)
  Receive Date: 20170717
  Receipt Date: 20170717
  Transmission Date: 20171127
  Serious: Yes (Life-Threatening, Hospitalization)
  Sender: FDA-Public Use
  Company Number: PHHY2017TR100229

PATIENT
  Age: 15 Year
  Sex: Female

DRUGS (1)
  1. SALBUTAMOL [Suspect]
     Active Substance: ALBUTEROL
     Indication: PRODUCT USED FOR UNKNOWN INDICATION
     Dosage: TOOK 50 TABLETS OF 4 MG SALBUTAMOL (A TOTAL OF 200 MG)
     Route: 065

REACTIONS (6)
  - Suicidal ideation [Unknown]
  - Toxicity to various agents [Unknown]
  - Palpitations [Unknown]
  - Hypoaesthesia [Unknown]
  - Sinus tachycardia [Recovering/Resolving]
  - Hyperglycaemia [Recovered/Resolved]
